FAERS Safety Report 9209485 (Version 2)
Quarter: 2013Q2

REPORT INFORMATION
  Report Type: Report from Study
  Country: DE (occurrence: DE)
  Receive Date: 20130404
  Receipt Date: 20130419
  Transmission Date: 20140414
  Serious: Yes (Other)
  Sender: FDA-Public Use
  Company Number: DE-GALDERMA-DE13000958

PATIENT
  Age: 51 Year
  Sex: Female
  Weight: 86 kg

DRUGS (2)
  1. PLIAGLIS [Suspect]
     Indication: LOCAL ANAESTHESIA
     Dosage: 70MG/70MG
     Route: 061
     Dates: start: 20130327, end: 20130327
  2. OMEPRAZOL [Concomitant]
     Indication: GASTRITIS
     Route: 048
     Dates: start: 20110301

REACTIONS (3)
  - Angioedema [Unknown]
  - Swollen tongue [Unknown]
  - Nasal congestion [Unknown]
